FAERS Safety Report 16010555 (Version 2)
Quarter: 2020Q1

REPORT INFORMATION
  Report Type: Spontaneous
  Country: US (occurrence: US)
  Receive Date: 20190225
  Receipt Date: 20200320
  Transmission Date: 20200409
  Serious: No
  Sender: FDA-Public Use
  Company Number: US-PFIZER INC-2019064770

PATIENT
  Age: 56 Year
  Sex: Male
  Weight: 145.1 kg

DRUGS (6)
  1. LYRICA [Suspect]
     Active Substance: PREGABALIN
     Indication: PAIN
     Dosage: 300 MG, 2X/DAY
     Route: 048
  2. LYRICA [Suspect]
     Active Substance: PREGABALIN
     Indication: RESTLESS LEGS SYNDROME
     Dosage: 300 MG, 2X/DAY
     Route: 048
  3. OXYCODONE [Concomitant]
     Active Substance: OXYCODONE
     Dosage: 60 MG, DAILY
  4. LYRICA [Suspect]
     Active Substance: PREGABALIN
     Indication: POLYNEUROPATHY
     Dosage: 900 MG, DAILY
     Route: 048
  5. LYRICA [Suspect]
     Active Substance: PREGABALIN
     Indication: HYPOAESTHESIA
     Dosage: 300 MG, 2X/DAY
     Route: 048
     Dates: start: 20181022, end: 20190119
  6. LYRICA [Suspect]
     Active Substance: PREGABALIN
     Indication: NEUROPATHY PERIPHERAL

REACTIONS (4)
  - Gait inability [Unknown]
  - Malaise [Unknown]
  - Therapeutic product effect incomplete [Unknown]
  - Overdose [Unknown]
